FAERS Safety Report 13696371 (Version 1)
Quarter: 2017Q2

REPORT INFORMATION
  Report Type: Other
  Country: CA (occurrence: CA)
  Receive Date: 20170628
  Receipt Date: 20170628
  Transmission Date: 20170830
  Serious: Yes (Life-Threatening, Other)
  Sender: FDA-Public Use
  Company Number: CA-APOTEX-2017AP013271

PATIENT
  Age: 28 Year
  Sex: Female

DRUGS (1)
  1. APO-OLANZAPINE [Suspect]
     Active Substance: OLANZAPINE
     Indication: PSYCHOTIC DISORDER
     Dosage: 15 MG, QD
     Route: 048

REACTIONS (2)
  - Product substitution issue [Recovered/Resolved]
  - Psychotic disorder [Recovered/Resolved]
